FAERS Safety Report 6042694-3 (Version None)
Quarter: 2009Q1

REPORT INFORMATION
  Report Type: 
  Country: None (occurrence: None)
  Receive Date: 20090119
  Receipt Date: 20090114
  Transmission Date: 20090719
  Serious: Yes (Death, Hospitalization)
  Sender: FDA-Public Use
  Company Number: PHHY2008CA26515

PATIENT
  Sex: Female

DRUGS (1)
  1. SANDOSTATIN LAR [Suspect]
     Indication: CARCINOID SYNDROME
     Dosage: 30MG ONCE A MONTH
     Route: 030
     Dates: start: 20071115

REACTIONS (4)
  - DEATH [None]
  - DYSPNOEA [None]
  - PAIN IN EXTREMITY [None]
  - PLEURAL EFFUSION [None]
